FAERS Safety Report 9838128 (Version 1)
Quarter: 2014Q1

REPORT INFORMATION
  Report Type: Report from Study
  Country: CO (occurrence: CO)
  Receive Date: 20140123
  Receipt Date: 20140123
  Transmission Date: 20141002
  Serious: Yes (Death, Hospitalization)
  Sender: FDA-Public Use
  Company Number: CO-SA-2014SA005433

PATIENT
  Age: 88 Year
  Sex: Female

DRUGS (1)
  1. APROVEL [Suspect]
     Indication: HYPERTENSION
     Route: 048
     Dates: start: 2010, end: 20131223

REACTIONS (4)
  - Thrombotic stroke [Fatal]
  - Acute myocardial infarction [Fatal]
  - Hypokalaemia [Not Recovered/Not Resolved]
  - Hyponatraemia [Not Recovered/Not Resolved]
